FAERS Safety Report 17329775 (Version 1)
Quarter: 2020Q1

REPORT INFORMATION
  Report Type: Spontaneous
  Country: RU (occurrence: RU)
  Receive Date: 20200128
  Receipt Date: 20200128
  Transmission Date: 20200409
  Serious: Yes (Other)
  Sender: FDA-Public Use
  Company Number: RU-JNJFOC-20200137963

PATIENT
  Age: 74 Year
  Sex: Female

DRUGS (6)
  1. NADROPARIN CALCIUM [Concomitant]
     Active Substance: NADROPARIN CALCIUM
     Indication: CYSTOID MACULAR OEDEMA
     Dosage: 0.8 ML, BID
     Route: 058
  2. RIVAROXABAN [Suspect]
     Active Substance: RIVAROXABAN
     Indication: THROMBOLYSIS
     Dosage: 20 MG, QD
     Route: 048
     Dates: start: 2014
  3. ENOXAPARIN SODIUM. [Concomitant]
     Active Substance: ENOXAPARIN SODIUM
     Dosage: 0.8 ML, QD
     Route: 058
  4. SULODEXIDE [Concomitant]
     Active Substance: SULODEXIDE
     Dosage: 500 LSU, QD
  5. ENOXAPARIN SODIUM. [Concomitant]
     Active Substance: ENOXAPARIN SODIUM
     Dosage: 0.6 ML, QD
     Route: 058
  6. RIVAROXABAN [Suspect]
     Active Substance: RIVAROXABAN
     Indication: PULMONARY EMBOLISM
     Dosage: 15 MG, QD
     Route: 048
     Dates: start: 2014, end: 2014

REACTIONS (10)
  - Hypercoagulation [Unknown]
  - Cystoid macular oedema [Unknown]
  - Dyspnoea exertional [Not Recovered/Not Resolved]
  - Retinal vein thrombosis [Unknown]
  - Vascular pain [Unknown]
  - Inappropriate schedule of product administration [Unknown]
  - General physical health deterioration [Unknown]
  - Prescribed underdose [Unknown]
  - Type 2 diabetes mellitus [Unknown]
  - Oedema peripheral [Not Recovered/Not Resolved]

NARRATIVE: CASE EVENT DATE: 201410
